FAERS Safety Report 4579751-4 (Version None)
Quarter: 2005Q1

REPORT INFORMATION
  Report Type: 
  Country: None (occurrence: None)
  Receive Date: 20050209
  Receipt Date: 20050128
  Transmission Date: 20050727
  Serious: Yes (Death)
  Sender: FDA-Public Use
  Company Number: 2005-DE-00359GD

PATIENT
  Age: 74 Year
  Sex: Male

DRUGS (6)
  1. ACETAMINOPHEN [Suspect]
  2. DIAZEPAM [Suspect]
  3. CHLORPROMAZINE (CHLORPROMAZINE) (TRAZODONE-HCL) [Concomitant]
  4. TRAZODONE (TRAZODONE HYDROCHLORIDE) (TRAZODONE-HCL) [Concomitant]
  5. CLORAZEPATE (CLORAZEPATE DIPOTASSIUM) [Concomitant]
  6. METHYLPHENIDATE HCL [Concomitant]

REACTIONS (2)
  - COMPLETED SUICIDE [None]
  - POLYSUBSTANCE ABUSE [None]
